FAERS Safety Report 4530609-6 (Version None)
Quarter: 2004Q4

REPORT INFORMATION
  Report Type: 
  Country: None (occurrence: None)
  Receive Date: 20041217
  Receipt Date: 20041217
  Transmission Date: 20050328
  Serious: Yes (Other)
  Sender: FDA-Public Use
  Company Number: None

PATIENT
  Sex: Female

DRUGS (3)
  1. ZETIA [Suspect]
     Indication: HYPERCHOLESTEROLAEMIA
     Dosage: 10MG  DAILY ORAL
     Route: 048
     Dates: start: 20040727, end: 20040801
  2. PRAVASTATIN [Concomitant]
  3. ALENDRONATE SODIUM [Concomitant]

REACTIONS (3)
  - BACK PAIN [None]
  - FLANK PAIN [None]
  - HERPES ZOSTER [None]
